FAERS Safety Report 11648889 (Version 1)
Quarter: 2015Q4

REPORT INFORMATION
  Report Type: Spontaneous
  Country: US (occurrence: US)
  Receive Date: 20151021
  Receipt Date: 20151021
  Transmission Date: 20160304
  Serious: Yes (Death, Hospitalization)
  Sender: FDA-Public Use
  Company Number: US-PFIZER INC-2015343699

PATIENT
  Age: 70 Year
  Sex: Male
  Weight: 70 kg

DRUGS (5)
  1. INLYTA [Suspect]
     Active Substance: AXITINIB
     Indication: RENAL CANCER
     Dosage: 5 MG, EVERY 12 HOURS
     Route: 048
     Dates: start: 201508, end: 20150922
  2. HYDROMORPHONE [Concomitant]
     Active Substance: HYDROMORPHONE
     Indication: PAIN
     Dosage: 2 MG TABLETS, 1 OR 2 TABLETS EVERY TWO HOURS
     Route: 048
     Dates: start: 20150926
  3. MORPHINE SULFATE ER [Concomitant]
     Active Substance: MORPHINE SULFATE
     Indication: PAIN
     Dosage: 30 MG, EVERY 8 HOURS
     Dates: start: 20150909
  4. TERAZOSIN [Concomitant]
     Active Substance: TERAZOSIN\TERAZOSIN HYDROCHLORIDE
     Indication: PROSTATOMEGALY
     Dosage: 1 MG, AT BEDTIME
  5. GABAPENTIN. [Concomitant]
     Active Substance: GABAPENTIN
     Indication: GOUT
     Dosage: 1500 MG, DAILY (300 MG CAPSULE, 2 IN THE MORNING, 1 AT NOON, AND 2 AT NIGHT)

REACTIONS (3)
  - Renal cancer [Fatal]
  - Disease progression [Fatal]
  - Pain [Unknown]

NARRATIVE: CASE EVENT DATE: 201509
